FAERS Safety Report 8603304-1 (Version None)
Quarter: 2012Q3

REPORT INFORMATION
  Report Type: 
  Country: None (occurrence: None)
  Receive Date: 20120817
  Receipt Date: 20120814
  Transmission Date: 20120928
  Serious: Yes (Other)
  Sender: FDA-Public Use
  Company Number: PHHY2012CA070357

PATIENT
  Sex: Female

DRUGS (2)
  1. HUMIRA [Suspect]
     Indication: CROHN'S DISEASE
     Dosage: 80 MG, ONE IN 2 WEEK
     Route: 058
     Dates: start: 20070625
  2. ZOLEDRONOC ACID [Suspect]
     Indication: OSTEOPENIA
     Route: 042
     Dates: start: 20110101

REACTIONS (8)
  - THYROID NEOPLASM [None]
  - NEPHROLITHIASIS [None]
  - DIARRHOEA HAEMORRHAGIC [None]
  - DIARRHOEA [None]
  - CHILLS [None]
  - NAUSEA [None]
  - PYREXIA [None]
  - VOMITING [None]
